FAERS Safety Report 23791586 (Version 1)
Quarter: 2024Q2

REPORT INFORMATION
  Report Type: Spontaneous
  Country: US (occurrence: US)
  Receive Date: 20240429
  Receipt Date: 20240429
  Transmission Date: 20240717
  Serious: No
  Sender: FDA-Public Use
  Company Number: US-ABBVIE-5734880

PATIENT
  Weight: 79.378 kg

DRUGS (4)
  1. LINZESS [Suspect]
     Active Substance: LINACLOTIDE
     Indication: Irritable bowel syndrome
     Dosage: FORM STRENGTH: 145 MICROGRAM
     Route: 048
     Dates: start: 201910
  2. TIMOLOL [Concomitant]
     Active Substance: TIMOLOL
     Indication: Intraocular pressure decreased
  3. FINASTERIDE [Concomitant]
     Active Substance: FINASTERIDE
     Indication: Prostatomegaly
  4. LUMIGAN [Concomitant]
     Active Substance: BIMATOPROST
     Indication: Intraocular pressure decreased

REACTIONS (2)
  - Drug ineffective [Not Recovered/Not Resolved]
  - Constipation [Not Recovered/Not Resolved]

NARRATIVE: CASE EVENT DATE: 20240101
